FAERS Safety Report 5413298-8 (Version None)
Quarter: 2007Q3

REPORT INFORMATION
  Report Type: 
  Country: None (occurrence: None)
  Receive Date: 20070717
  Receipt Date: 20070209
  Transmission Date: 20080115
  Serious: Yes (Life-Threatening)
  Sender: FDA-Public Use
  Company Number: 2007US000314

PATIENT
  Age: 55 Year
  Sex: Female

DRUGS (3)
  1. ADENOSCAN [Suspect]
     Indication: SCAN MYOCARDIAL PERFUSION
  2. THEOPHYLLINE [Concomitant]
  3. OXCARBAZEPINE [Concomitant]

REACTIONS (1)
  - RESPIRATORY ARREST [None]
